FAERS Safety Report 21962540 (Version 3)
Quarter: 2023Q1

REPORT INFORMATION
  Report Type: Spontaneous
  Country: ES (occurrence: ES)
  Receive Date: 20230207
  Receipt Date: 20230210
  Transmission Date: 20230417
  Serious: Yes (Life-Threatening, Other)
  Sender: FDA-Public Use
  Company Number: None

PATIENT
  Age: 52 Year
  Sex: Male
  Weight: 75 kg

DRUGS (8)
  1. ZOLEDRONIC ACID [Suspect]
     Active Substance: ZOLEDRONIC ACID
     Indication: Product used for unknown indication
     Dosage: 8 MG PER YEAR (8 MG AL ANO IV (4MG DI5AS 1 Y 28 DE CADA ANO)
     Route: 042
     Dates: start: 20190506
  2. ZOLEDRONIC ACID [Suspect]
     Active Substance: ZOLEDRONIC ACID
     Dosage: UNK
     Route: 042
     Dates: start: 20200127
  3. LENALIDOMIDE [Suspect]
     Active Substance: LENALIDOMIDE
     Indication: Plasma cell myeloma
     Dosage: 25 MG, QD
     Route: 065
     Dates: start: 20190506, end: 20200323
  4. LENALIDOMIDE [Suspect]
     Active Substance: LENALIDOMIDE
     Dosage: 10 MG, QD
     Route: 048
     Dates: start: 20200323, end: 20220131
  5. VELCADE [Suspect]
     Active Substance: BORTEZOMIB
     Indication: Plasma cell myeloma
     Dosage: 2.5 MG, CYCLIC (2,5 MG SUBCUTANEA DIAS 1,4,8, Y 12 DE CADA CICLO DE 28 DIAS)
     Route: 058
     Dates: start: 20190506, end: 20200305
  6. VELCADE [Suspect]
     Active Substance: BORTEZOMIB
     Dosage: 2.5 MG, CYCLIC (2.5 MG SUBCUTANEOUSLY ON DAYS 1,4,8, AND 12 OF EACH 28-DAY CYCLE)
     Route: 058
     Dates: start: 20200120, end: 20200305
  7. DARZALEX [Suspect]
     Active Substance: DARATUMUMAB
     Indication: Plasma cell myeloma
     Dosage: 1800 MG, 28D
     Route: 058
     Dates: start: 20190506, end: 20220131
  8. DARZALEX [Suspect]
     Active Substance: DARATUMUMAB
     Dosage: 1800 MG, 28D
     Route: 058
     Dates: start: 20200127, end: 20220131

REACTIONS (4)
  - Pityriasis rubra pilaris [Recovered/Resolved]
  - Cutaneous T-cell lymphoma [Unknown]
  - Lichenoid keratosis [Recovered/Resolved]
  - Toxic skin eruption [Recovered/Resolved]

NARRATIVE: CASE EVENT DATE: 20200403
